FAERS Safety Report 10522749 (Version 4)
Quarter: 2015Q1

REPORT INFORMATION
  Report Type: Report from Study
  Country: US (occurrence: US)
  Receive Date: 20141016
  Receipt Date: 20150202
  Transmission Date: 20150720
  Serious: Yes (Other)
  Sender: FDA-Public Use
  Company Number: US-SA-2014SA092590

PATIENT
  Age: 28 Year
  Sex: Female

DRUGS (1)
  1. AUBAGIO [Suspect]
     Active Substance: TERIFLUNOMIDE
     Indication: MULTIPLE SCLEROSIS
     Route: 048
     Dates: start: 20131006, end: 20150120

REACTIONS (6)
  - Fatigue [Unknown]
  - Alopecia [Unknown]
  - Blindness [Unknown]
  - Optic neuritis [Unknown]
  - Eye pain [Unknown]
  - Multiple sclerosis relapse [Unknown]
